FAERS Safety Report 4894712-3 (Version None)
Quarter: 2006Q1

REPORT INFORMATION
  Report Type: 
  Country: None (occurrence: None)
  Receive Date: 20060130
  Receipt Date: 20060118
  Transmission Date: 20060701
  Serious: Yes (Death)
  Sender: FDA-Public Use
  Company Number: IT-JNJFOC-20060103958

PATIENT
  Sex: Male

DRUGS (4)
  1. REOPRO [Suspect]
     Dosage: 4.0 ML IN 46 ML DILUENT RATE 4.0 ML/H
     Route: 042
  2. REOPRO [Suspect]
     Indication: ACUTE MYOCARDIAL INFARCTION
     Route: 042
  3. RETEPLASE [Suspect]
     Indication: ACUTE MYOCARDIAL INFARCTION
     Route: 042
  4. HEPARIN [Concomitant]

REACTIONS (1)
  - MYOCARDIAL RUPTURE [None]
